FAERS Safety Report 10150338 (Version 1)
Quarter: 2014Q2

REPORT INFORMATION
  Report Type: Spontaneous
  Country: US (occurrence: US)
  Receive Date: 20140502
  Receipt Date: 20140502
  Transmission Date: 20141212
  Serious: No
  Sender: FDA-Public Use
  Company Number: US-TEVA-478179USA

PATIENT
  Age: 46 Year
  Sex: Male
  Weight: 78.54 kg

DRUGS (10)
  1. ACTIQ [Suspect]
     Indication: FACIAL PAIN
     Route: 048
     Dates: start: 2005, end: 20140416
  2. ACTIQ [Suspect]
     Indication: CHRONIC LYMPHOCYTIC LEUKAEMIA
  3. ACTIQ [Suspect]
     Indication: NODAL MARGINAL ZONE B-CELL LYMPHOMA
  4. HYDROMORPHONE [Concomitant]
     Indication: PAIN
  5. AMLODIPINE [Concomitant]
     Indication: BLOOD PRESSURE
  6. METHADONE [Concomitant]
     Indication: FACIAL PAIN
  7. METHADONE [Concomitant]
     Indication: BACK PAIN
  8. DIAZEPAM [Concomitant]
     Indication: MUSCLE SPASMS
  9. FLONASE [Concomitant]
     Indication: HYPERSENSITIVITY
  10. ASPIRIN [Concomitant]

REACTIONS (3)
  - Pain [Not Recovered/Not Resolved]
  - Eating disorder [Not Recovered/Not Resolved]
  - Abdominal discomfort [Not Recovered/Not Resolved]
